FAERS Safety Report 7282232-0 (Version None)
Quarter: 2011Q1

REPORT INFORMATION
  Report Type: 
  Country: None (occurrence: None)
  Receive Date: 20110125
  Receipt Date: 20110114
  Transmission Date: 20110831
  Serious: Yes (Hospitalization)
  Sender: FDA-Public Use
  Company Number: TPA2011A00194

PATIENT
  Sex: Male

DRUGS (1)
  1. ULORIC [Suspect]

REACTIONS (1)
  - UNRESPONSIVE TO STIMULI [None]
